FAERS Safety Report 7735581-3 (Version None)
Quarter: 2011Q3

REPORT INFORMATION
  Report Type: 
  Country: None (occurrence: None)
  Receive Date: 20110907
  Receipt Date: 20110831
  Transmission Date: 20111222
  Serious: No
  Sender: FDA-Public Use
  Company Number: US-ABBOTT-11P-163-0843725-00

PATIENT
  Sex: Male

DRUGS (8)
  1. UNKNOWN OINTMENTS [Concomitant]
     Indication: PSORIASIS
     Route: 061
  2. HUMIRA [Suspect]
     Indication: RHEUMATOID ARTHRITIS
     Dates: start: 20100419, end: 20101201
  3. MORPHINE [Concomitant]
     Indication: PAIN
  4. NEURONTIN [Concomitant]
     Indication: PRODUCT USED FOR UNKNOWN INDICATION
  5. HUMIRA [Suspect]
     Indication: PSORIASIS
     Dates: start: 20110501
  6. FLUID PILL [Concomitant]
     Indication: FLUID IMBALANCE
     Dosage: AS NEEDED
  7. UNKNOWN MEDICATION [Concomitant]
     Indication: PAIN
  8. UNKNOWN MEDICATION [Concomitant]
     Indication: HYPERTENSION

REACTIONS (6)
  - HEADACHE [None]
  - VISION BLURRED [None]
  - MUSCLE SPASMS [None]
  - INJECTION SITE PAIN [None]
  - FEELING ABNORMAL [None]
  - INFLUENZA LIKE ILLNESS [None]
